FAERS Safety Report 11525257 (Version 1)
Quarter: 2015Q3

REPORT INFORMATION
  Report Type: Spontaneous
  Country: FR (occurrence: FR)
  Receive Date: 20150918
  Receipt Date: 20150918
  Transmission Date: 20151125
  Serious: Yes (Death, Life-Threatening, Other)
  Sender: FDA-Public Use
  Company Number: FR-PFIZER INC-2015311335

PATIENT
  Age: 80 Year
  Sex: Male

DRUGS (14)
  1. PREVISCAN [Concomitant]
     Active Substance: FLUINDIONE
  2. FUROSEMIDE. [Concomitant]
     Active Substance: FUROSEMIDE
  3. NEBIVOLOL. [Concomitant]
     Active Substance: NEBIVOLOL
  4. ENANTONE LP [Concomitant]
     Active Substance: LEUPROLIDE ACETATE
  5. ZYTIGA [Concomitant]
     Active Substance: ABIRATERONE ACETATE
  6. PREDNISONE. [Concomitant]
     Active Substance: PREDNISONE
  7. MACROGOL [Concomitant]
     Active Substance: POLYETHYLENE GLYCOLS
  8. HYDROCORTISONE. [Concomitant]
     Active Substance: HYDROCORTISONE
     Dosage: UNK
     Dates: start: 20150831
  9. PRODILANTIN [Suspect]
     Active Substance: FOSPHENYTOIN SODIUM
     Dosage: 1300 MG, SINGLE
     Route: 042
     Dates: start: 20150831, end: 20150831
  10. INSULIN [Concomitant]
     Active Substance: INSULIN NOS
     Dosage: UNK
     Dates: start: 20150831
  11. CORDARONE [Concomitant]
     Active Substance: AMIODARONE HYDROCHLORIDE
  12. ODRIK [Concomitant]
     Active Substance: TRANDOLAPRIL
  13. TRACRIUM [Concomitant]
     Active Substance: ATRACURIUM BESYLATE
     Dosage: UNK
     Dates: start: 20150831
  14. XATRAL [Concomitant]
     Active Substance: ALFUZOSIN

REACTIONS (3)
  - Hypotension [Fatal]
  - Liver disorder [Unknown]
  - Hypoxic-ischaemic encephalopathy [Fatal]

NARRATIVE: CASE EVENT DATE: 20150831
